FAERS Safety Report 7605074-2 (Version None)
Quarter: 2011Q3

REPORT INFORMATION
  Report Type: 
  Country: None (occurrence: None)
  Receive Date: 20110713
  Receipt Date: 20090626
  Transmission Date: 20111222
  Serious: Yes (Other)
  Sender: FDA-Public Use
  Company Number: US-BAYER-200834744NA

PATIENT
  Age: 52 Year
  Sex: Male
  Weight: 102.95 kg

DRUGS (25)
  1. MAGNEVIST [Suspect]
     Indication: NUCLEAR MAGNETIC RESONANCE IMAGING
     Dates: start: 20050823, end: 20050823
  2. GADOLINIUM IN UNSPECIFIED DRUG [Suspect]
     Indication: NUCLEAR MAGNETIC RESONANCE IMAGING BRAIN
     Dosage: UNK
     Dates: start: 19971106, end: 19971106
  3. GADOLINIUM IN UNSPECIFIED DRUG [Suspect]
     Indication: NUCLEAR MAGNETIC RESONANCE IMAGING
     Dosage: UNK
     Dates: start: 20010129, end: 20010129
  4. GADOLINIUM IN UNSPECIFIED DRUG [Suspect]
     Dosage: UNK
     Dates: start: 20030130, end: 20030130
  5. FOSRENOL [Concomitant]
  6. LOVASTATIN [Concomitant]
  7. CARDIZEM [Concomitant]
  8. TOPAMAX [Concomitant]
  9. MAGNEVIST [Suspect]
     Indication: NUCLEAR MAGNETIC RESONANCE IMAGING BRAIN
  10. GADOLINIUM IN UNSPECIFIED DRUG [Suspect]
     Dosage: UNK
     Dates: start: 20041115, end: 20041115
  11. DOXAZOSIN MESYLATE [Concomitant]
  12. METOPROLOL TARTRATE [Concomitant]
  13. ALTACE [Concomitant]
  14. COUMADIN [Concomitant]
  15. ATENOLOL [Concomitant]
  16. CARDURA [Concomitant]
  17. ASPIRIN [Concomitant]
  18. NITROGLYCERIN [Concomitant]
  19. MAGNEVIST [Suspect]
     Indication: ANGIOGRAM
     Route: 042
     Dates: start: 20041230, end: 20041230
  20. MINOXIDIL [Concomitant]
  21. CORDARONE [Concomitant]
  22. NEPHROVITE [VIT C,VIT H,B5,B12,B9,B3,B6,B2,B1 HCL] [Concomitant]
  23. NORVASC [Concomitant]
  24. LISINOPRIL [Concomitant]
  25. DILTIAZEM [Concomitant]

REACTIONS (8)
  - JOINT CONTRACTURE [None]
  - SKIN HYPERTROPHY [None]
  - PAIN [None]
  - SKIN INDURATION [None]
  - NEPHROGENIC SYSTEMIC FIBROSIS [None]
  - MOBILITY DECREASED [None]
  - JOINT RANGE OF MOTION DECREASED [None]
  - INJURY [None]
